FAERS Safety Report 21170102 (Version 1)
Quarter: 2022Q3

REPORT INFORMATION
  Report Type: Report from Study
  Country: SE (occurrence: SE)
  Receive Date: 20220804
  Receipt Date: 20220804
  Transmission Date: 20221027
  Serious: Yes (Life-Threatening, Hospitalization, Other)
  Sender: FDA-Public Use
  Company Number: SE-ALS-000761

PATIENT
  Sex: Female

DRUGS (4)
  1. QUETIAPINE [Suspect]
     Active Substance: QUETIAPINE
     Indication: Off label use
     Dosage: 25 MG DAILY (WAS ADDED ON DAY 153)
     Route: 065
  2. LORAZEPAM [Concomitant]
     Active Substance: LORAZEPAM
     Indication: Product used for unknown indication
     Route: 065
  3. CLONIDINE [Concomitant]
     Active Substance: CLONIDINE
     Indication: Product used for unknown indication
     Route: 065
  4. QUETIAPINE [Suspect]
     Active Substance: QUETIAPINE
     Indication: Off label use
     Dosage: 75 MG/DAY
     Route: 065

REACTIONS (7)
  - Neuroleptic malignant syndrome [Unknown]
  - Hyperkinesia [Unknown]
  - Ileus paralytic [Unknown]
  - Seizure [Unknown]
  - Dystonia [Unknown]
  - Myoclonus [Unknown]
  - Off label use [Unknown]
